FAERS Safety Report 5342671-1 (Version None)
Quarter: 2007Q2

REPORT INFORMATION
  Report Type: 
  Country: None (occurrence: None)
  Receive Date: 20070601
  Receipt Date: 20070522
  Transmission Date: 20071010
  Serious: Yes (Hospitalization, Other)
  Sender: FDA-Public Use
  Company Number: US-AMGEN-US225973

PATIENT
  Age: 62 Year
  Sex: Female

DRUGS (2)
  1. ENBREL [Suspect]
     Indication: RHEUMATOID ARTHRITIS
     Route: 058
  2. PREDNISONE TAB [Suspect]
     Route: 048

REACTIONS (8)
  - BETA HAEMOLYTIC STREPTOCOCCAL INFECTION [None]
  - ERYSIPELAS [None]
  - EYELID PTOSIS [None]
  - FACIAL PARESIS [None]
  - LYMPHOEDEMA [None]
  - PHARYNGOLARYNGEAL PAIN [None]
  - SKIN HYPERPIGMENTATION [None]
  - STREPTOCOCCAL BACTERAEMIA [None]
